FAERS Safety Report 7058284-X (Version None)
Quarter: 2010Q4

REPORT INFORMATION
  Report Type: 
  Country: None (occurrence: None)
  Receive Date: 20101022
  Receipt Date: 20101019
  Transmission Date: 20110411
  Serious: No
  Sender: FDA-Public Use
  Company Number: US-PFIZER INC-2010128559

PATIENT
  Sex: Male

DRUGS (2)
  1. LIPITOR [Suspect]
     Indication: BLOOD CHOLESTEROL ABNORMAL
     Dosage: 40 MG, DAILY
     Route: 048
     Dates: start: 20090101
  2. NIASPAN [Concomitant]
     Indication: THYROID DISORDER
     Dosage: 500 MG, DAILY
     Route: 048

REACTIONS (1)
  - PRODUCT ODOUR ABNORMAL [None]
